FAERS Safety Report 17255376 (Version 1)
Quarter: 2020Q1

REPORT INFORMATION
  Report Type: Spontaneous
  Country: GB (occurrence: GB)
  Receive Date: 20200110
  Receipt Date: 20200110
  Transmission Date: 20200409
  Serious: Yes (Other)
  Sender: FDA-Public Use
  Company Number: GB-009507513-2001GBR001865

PATIENT
  Age: 52 Year
  Sex: Male
  Weight: 78.7 kg

DRUGS (1)
  1. ZEPATIER [Suspect]
     Active Substance: ELBASVIR\GRAZOPREVIR
     Dosage: 100 MILLIGRAM
     Route: 048
     Dates: start: 20190924, end: 20191123

REACTIONS (1)
  - Drug-induced liver injury [Unknown]
